FAERS Safety Report 18973223 (Version 2)
Quarter: 2021Q4

REPORT INFORMATION
  Report Type: Other
  Country: US (occurrence: None)
  Receive Date: 20210305
  Receipt Date: 20211122
  Transmission Date: 20220303
  Serious: Yes (Death, Hospitalization)
  Sender: FDA-Public Use
  Company Number: US-ROCHE-2767956

PATIENT
  Sex: Female

DRUGS (18)
  1. OCREVUS [Suspect]
     Active Substance: OCRELIZUMAB
     Indication: Primary progressive multiple sclerosis
     Dosage: IV 2 WEEKS APART
     Route: 042
     Dates: start: 20170814, end: 20200826
  2. OCREVUS [Suspect]
     Active Substance: OCRELIZUMAB
     Route: 042
  3. OCREVUS [Suspect]
     Active Substance: OCRELIZUMAB
     Route: 042
     Dates: start: 20181010
  4. TYLOL [Concomitant]
  5. ALLEGRA [Concomitant]
     Active Substance: FEXOFENADINE HYDROCHLORIDE
  6. CLINDAMYCIN [Concomitant]
     Active Substance: CLINDAMYCIN
  7. ABILIFY [Concomitant]
     Active Substance: ARIPIPRAZOLE
  8. SINGULAIR [Concomitant]
     Active Substance: MONTELUKAST SODIUM
  9. POTASSIUM CHLORIDE [Concomitant]
     Active Substance: POTASSIUM CHLORIDE
  10. LASIX [Concomitant]
     Active Substance: FUROSEMIDE
  11. GABAPENTIN [Concomitant]
     Active Substance: GABAPENTIN
  12. DELZICOL [Concomitant]
     Active Substance: MESALAMINE
  13. BYDUREON [Concomitant]
     Active Substance: EXENATIDE
  14. VOLTAREN [Concomitant]
     Active Substance: DICLOFENAC SODIUM
  15. SINEQUAN [Concomitant]
     Active Substance: DOXEPIN HYDROCHLORIDE
  16. DURAGESIC [Concomitant]
     Active Substance: FENTANYL
  17. EFFEXOR XR [Concomitant]
     Active Substance: VENLAFAXINE HYDROCHLORIDE
  18. ISOPTO ATROPINE [Concomitant]
     Active Substance: ATROPINE SULFATE

REACTIONS (4)
  - Death [Fatal]
  - Abdominal abscess [Unknown]
  - Pancreatitis [Unknown]
  - Pyoderma gangrenosum [Unknown]
